FAERS Safety Report 11385951 (Version 1)
Quarter: 2015Q3

REPORT INFORMATION
  Report Type: Spontaneous
  Country: US (occurrence: None)
  Receive Date: 20150813
  Receipt Date: 20150813
  Transmission Date: 20151125
  Serious: Yes (Hospitalization)
  Sender: FDA-Public Use
  Company Number: None

PATIENT
  Age: 55 Year
  Sex: Male
  Weight: 92.7 kg

DRUGS (3)
  1. LEUCOVORIN CALCIUM. [Suspect]
     Active Substance: LEUCOVORIN CALCIUM
     Dates: end: 20150805
  2. 5-FLUOROURACIL (5-FU) [Suspect]
     Active Substance: FLUOROURACIL
     Dates: end: 20150806
  3. ELOXATIN [Suspect]
     Active Substance: OXALIPLATIN
     Dates: end: 20150805

REACTIONS (3)
  - Myocardial infarction [None]
  - Middle insomnia [None]
  - Chest pain [None]

NARRATIVE: CASE EVENT DATE: 20150810
